FAERS Safety Report 6767993-9 (Version None)
Quarter: 2010Q2

REPORT INFORMATION
  Report Type: 
  Country: None (occurrence: None)
  Receive Date: 20100614
  Receipt Date: 20100604
  Transmission Date: 20101027
  Serious: Yes (Other)
  Sender: FDA-Public Use
  Company Number: A0863085A

PATIENT
  Age: 62 Year
  Sex: Female

DRUGS (13)
  1. PAXIL [Suspect]
     Indication: CRYING
     Dosage: 20MG PER DAY
     Route: 048
     Dates: start: 20000101, end: 20100527
  2. REQUIP [Suspect]
     Indication: RESTLESS LEGS SYNDROME
     Dosage: 4MG VARIABLE DOSE
     Route: 048
     Dates: start: 20070101
  3. TOPAMAX [Suspect]
     Dosage: 50MG AT NIGHT
     Route: 048
     Dates: start: 20090101
  4. THYROID MEDICATION [Concomitant]
  5. IBUPROFEN [Concomitant]
  6. NORVASC [Concomitant]
  7. AVALIDE [Concomitant]
  8. SULFAMETHOXAZOLE [Concomitant]
  9. NEXIUM [Concomitant]
  10. ANTIBIOTIC [Concomitant]
  11. NYSTATIN [Concomitant]
  12. PREDNISONE [Concomitant]
  13. PREVACID [Concomitant]

REACTIONS (25)
  - BALANCE DISORDER [None]
  - BRONCHITIS [None]
  - CONFUSIONAL STATE [None]
  - DIARRHOEA [None]
  - DRUG INEFFECTIVE [None]
  - DRUG INTERACTION [None]
  - EMOTIONAL DISORDER [None]
  - EUPHORIC MOOD [None]
  - EYE IRRITATION [None]
  - FALL [None]
  - FATIGUE [None]
  - FEAR [None]
  - FEELING ABNORMAL [None]
  - FEELING DRUNK [None]
  - GAIT DISTURBANCE [None]
  - HALLUCINATION [None]
  - ILL-DEFINED DISORDER [None]
  - JOINT SPRAIN [None]
  - LOSS OF EMPLOYMENT [None]
  - NERVOUSNESS [None]
  - QUALITY OF LIFE DECREASED [None]
  - SINUSITIS [None]
  - THINKING ABNORMAL [None]
  - TREMOR [None]
  - VOMITING [None]
